FAERS Safety Report 19379328 (Version 1)
Quarter: 2021Q2

REPORT INFORMATION
  Report Type: Report from Study
  Country: KR (occurrence: KR)
  Receive Date: 20210607
  Receipt Date: 20210607
  Transmission Date: 20210717
  Serious: Yes (Hospitalization)
  Sender: FDA-Public Use
  Company Number: KR-JNJFOC-20210609623

PATIENT
  Sex: Female
  Weight: 62 kg

DRUGS (11)
  1. LOSARTAN POTASSIUM. [Concomitant]
     Active Substance: LOSARTAN POTASSIUM
     Dosage: 25 MG
     Route: 048
     Dates: start: 20200103
  2. ATORVASTATIN [Concomitant]
     Active Substance: ATORVASTATIN
     Indication: EMBOLIC CEREBRAL INFARCTION
     Dosage: 10 MG
     Route: 048
     Dates: start: 20210424
  3. KETOROLAC [Concomitant]
     Active Substance: KETOROLAC TROMETHAMINE
     Indication: EMBOLIC CEREBRAL INFARCTION
     Dosage: 30 MG
     Route: 042
     Dates: start: 20210424, end: 20210424
  4. FUROSEMIDE. [Concomitant]
     Active Substance: FUROSEMIDE
     Dosage: 20 MG
     Route: 048
     Dates: start: 20180404
  5. PEPTIDES NOS [Concomitant]
     Indication: EMBOLIC CEREBRAL INFARCTION
     Dosage: 20 ML
     Route: 042
     Dates: start: 20210424, end: 20210430
  6. RIVAROXABAN [Suspect]
     Active Substance: RIVAROXABAN
     Indication: EMBOLISM ARTERIAL
     Dosage: 5 MG
     Route: 048
     Dates: start: 20210427
  7. RIVAROXABAN [Suspect]
     Active Substance: RIVAROXABAN
     Indication: ATRIAL FIBRILLATION
     Route: 048
  8. NICARDIPINE [Concomitant]
     Active Substance: NICARDIPINE
     Indication: EMBOLIC CEREBRAL INFARCTION
     Dosage: 10 MG
     Route: 042
     Dates: start: 20210424, end: 20210424
  9. ASPRIN [Concomitant]
     Active Substance: ASPIRIN
     Indication: EMBOLIC CEREBRAL INFARCTION
     Dosage: 300 MG
     Route: 048
     Dates: start: 20210425, end: 20210425
  10. ASPRIN [Concomitant]
     Active Substance: ASPIRIN
     Indication: EMBOLIC CEREBRAL INFARCTION
     Dosage: 100 MG
     Route: 048
     Dates: start: 20210426
  11. RIVAROXABAN [Suspect]
     Active Substance: RIVAROXABAN
     Indication: CEREBROVASCULAR ACCIDENT PROPHYLAXIS
     Dosage: 15 MG, QD
     Route: 048
     Dates: start: 20200403, end: 20210423

REACTIONS (1)
  - Embolic cerebral infarction [Not Recovered/Not Resolved]

NARRATIVE: CASE EVENT DATE: 20210424
